FAERS Safety Report 4538102-1 (Version None)
Quarter: 2004Q4

REPORT INFORMATION
  Report Type: 
  Country: None (occurrence: None)
  Receive Date: 20041227
  Receipt Date: 20041215
  Transmission Date: 20050328
  Serious: Yes (Other)
  Sender: FDA-Public Use
  Company Number: KR-BRISTOL-MYERS SQUIBB COMPANY-12800983

PATIENT
  Sex: Male

DRUGS (1)
  1. CARBIDOPA + LEVODOPA CR [Suspect]
     Route: 048
     Dates: start: 20031201

REACTIONS (1)
  - GASTRIC CANCER [None]
